FAERS Safety Report 11336724 (Version 1)
Quarter: 2015Q3

REPORT INFORMATION
  Report Type: Spontaneous
  Country: DK (occurrence: DK)
  Receive Date: 20150804
  Receipt Date: 20150804
  Transmission Date: 20151125
  Serious: Yes (Congenital Anomaly)
  Sender: FDA-Public Use
  Company Number: DK-TEVA-581552ISR

PATIENT
  Age: 0 Day
  Sex: Male

DRUGS (14)
  1. LAMOTRIGIN ^TEVA^ [Suspect]
     Active Substance: LAMOTRIGINE
     Dosage: 350 MG IN THE MORNING AND 400 MG IN THE EVENING.
     Route: 064
     Dates: start: 20150507
  2. LEVETIRACETAM ^STADA^ [Suspect]
     Active Substance: LEVETIRACETAM
     Dosage: 1,000 MG IN THE MORNING AND 1250 MG IN THE EVENING.
     Route: 064
     Dates: start: 20141126, end: 20150114
  3. BURANA [Concomitant]
     Active Substance: IBUPROFEN
     Route: 064
  4. EPISTATUS BUKKAL ^SPECIAL PRODUCTS LTD^ [Concomitant]
     Route: 064
  5. CETIRIZINE [Concomitant]
     Active Substance: CETIRIZINE HYDROCHLORIDE
     Route: 064
  6. LAMOTRIGIN ^TEVA^ [Suspect]
     Active Substance: LAMOTRIGINE
     Dosage: 250 MG IN THE MORNING AND 200 MG IN THE EVENING.
     Route: 064
     Dates: start: 20141127, end: 20150114
  7. LAMOTRIGIN ^TEVA^ [Suspect]
     Active Substance: LAMOTRIGINE
     Dosage: 250 MG IN THE MORNING AND 300 MG IN THE EVENING.
     Route: 064
     Dates: start: 20150122, end: 20150128
  8. LEVETIRACETAM ^STADA^ [Suspect]
     Active Substance: LEVETIRACETAM
     Dosage: ): 1500 MG IN THE MORNING AND 1750 MG IN THE EVENING.
     Route: 064
     Dates: start: 20150507
  9. LAMOTRIGIN ^TEVA^ [Suspect]
     Active Substance: LAMOTRIGINE
     Indication: EPILEPSY
     Dosage: 200 MG 2 TIMES DAILY
     Route: 064
     Dates: start: 20110202, end: 20141126
  10. LAMOTRIGIN ^TEVA^ [Suspect]
     Active Substance: LAMOTRIGINE
     Dosage: 250 MG 2 TIMES DAILY.
     Route: 064
     Dates: start: 20150115, end: 20150121
  11. LAMOTRIGIN ^TEVA^ [Suspect]
     Active Substance: LAMOTRIGINE
     Dosage: 300 MG 2 TIMES DAILY.
     Route: 064
     Dates: start: 20150129, end: 20150318
  12. LEVETIRACETAM ^STADA^ [Suspect]
     Active Substance: LEVETIRACETAM
     Indication: EPILEPSY
     Dosage: 500 MG 2 TIMES DAILY.
     Route: 064
     Dates: start: 20111023, end: 20141125
  13. LEVETIRACETAM ^STADA^ [Suspect]
     Active Substance: LEVETIRACETAM
     Dosage: 1250 MG TWO TIMES DAILY.
     Route: 064
     Dates: start: 20150115, end: 20150305
  14. LEVETIRACETAM ^STADA^ [Suspect]
     Active Substance: LEVETIRACETAM
     Dosage: 1500 MG TWO TIMES DAILY.
     Route: 064
     Dates: start: 20150306, end: 20150506

REACTIONS (4)
  - Congenital hand malformation [Not Recovered/Not Resolved]
  - Limb reduction defect [Not Recovered/Not Resolved]
  - Bone development abnormal [Not Recovered/Not Resolved]
  - Foetal exposure during pregnancy [Recovered/Resolved]

NARRATIVE: CASE EVENT DATE: 20150710
